FAERS Safety Report 8978561 (Version 1)
Quarter: 2012Q4

REPORT INFORMATION
  Report Type: Spontaneous
  Country: US (occurrence: None)
  Receive Date: 20121218
  Receipt Date: 20121218
  Transmission Date: 20130627
  Serious: Yes (Other)
  Sender: FDA-Public Use
  Company Number: None

PATIENT
  Sex: Female
  Weight: 72.58 kg

DRUGS (2)
  1. ESCALITALOPRAM 10 MG TEVA [Suspect]
     Indication: DYSTHYMIA
     Dosage: 10 daily po
     Route: 048
  2. LEXAPRO [Concomitant]

REACTIONS (2)
  - Drug withdrawal syndrome [None]
  - Product substitution issue [None]
